FAERS Safety Report 7112078-5 (Version None)
Quarter: 2010Q4

REPORT INFORMATION
  Report Type: 
  Country: None (occurrence: None)
  Receive Date: 20101119
  Receipt Date: 20101109
  Transmission Date: 20110411
  Serious: Yes (Hospitalization)
  Sender: FDA-Public Use
  Company Number: CA-US-EMD SERONO, INC.-7026936

PATIENT
  Sex: Male

DRUGS (4)
  1. REBIF [Suspect]
     Indication: RELAPSING-REMITTING MULTIPLE SCLEROSIS
     Dates: start: 20090320
  2. HYDROXINE (MORPHINE) [Concomitant]
  3. PANTOPRAZOLE [Concomitant]
     Indication: GASTROOESOPHAGEAL REFLUX DISEASE
  4. FUROSEMIDE [Concomitant]
     Indication: FLUID RETENTION

REACTIONS (9)
  - ASTHENIA [None]
  - DYSPNOEA [None]
  - FACIAL PAIN [None]
  - FLUID RETENTION [None]
  - GAIT DISTURBANCE [None]
  - MYALGIA [None]
  - PAIN [None]
  - RESTLESS LEGS SYNDROME [None]
  - WEIGHT DECREASED [None]
